FAERS Safety Report 6335517-6 (Version None)
Quarter: 2009Q3

REPORT INFORMATION
  Report Type: 
  Country: None (occurrence: None)
  Receive Date: 20090831
  Receipt Date: 20090827
  Transmission Date: 20100115
  Serious: Yes (Death)
  Sender: FDA-Public Use
  Company Number: US-GILEAD-2009-0022248

PATIENT
  Sex: Female
  Weight: 48.124 kg

DRUGS (9)
  1. LETAIRIS [Suspect]
     Indication: PULMONARY ARTERIAL HYPERTENSION
     Route: 048
     Dates: start: 20080405
  2. REVATIO [Concomitant]
  3. COUMADIN [Concomitant]
     Indication: CARDIAC DISORDER
  4. LASIX [Concomitant]
  5. ADVAIR HFA [Concomitant]
  6. LIPITOR [Concomitant]
     Indication: BLOOD CHOLESTEROL INCREASED
  7. MULTI-VITAMIN [Concomitant]
  8. COD LIVER OIL [Concomitant]
  9. VITAMIN A+D [Concomitant]

REACTIONS (1)
  - CARDIAC FAILURE CONGESTIVE [None]
